FAERS Safety Report 21254630 (Version 1)
Quarter: 2022Q3

REPORT INFORMATION
  Report Type: Spontaneous
  Country: PL (occurrence: PL)
  Receive Date: 20220825
  Receipt Date: 20220825
  Transmission Date: 20221027
  Serious: Yes (Death, Other)
  Sender: FDA-Public Use
  Company Number: PL-AMGEN-POLSP2022145224

PATIENT
  Age: 76 Year
  Sex: Female

DRUGS (3)
  1. TALIMOGENE LAHERPAREPVEC [Suspect]
     Active Substance: TALIMOGENE LAHERPAREPVEC
     Indication: Malignant melanoma
     Dosage: UNK
     Route: 065
  2. PEMBROLIZUMAB [Concomitant]
     Active Substance: PEMBROLIZUMAB
     Indication: Malignant melanoma
     Dosage: UNK
  3. BLEOMYCIN [Concomitant]
     Active Substance: BLEOMYCIN SULFATE
     Indication: Malignant melanoma
     Dosage: UNK

REACTIONS (3)
  - Embolism [Fatal]
  - Metastatic malignant melanoma [Fatal]
  - Basal cell carcinoma [Unknown]
